FAERS Safety Report 11896625 (Version 1)
Quarter: 2016Q1

REPORT INFORMATION
  Report Type: Report from Study
  Country: BO (occurrence: BO)
  Receive Date: 20160107
  Receipt Date: 20160107
  Transmission Date: 20160526
  Serious: Yes (Death, Other)
  Sender: FDA-Public Use
  Company Number: PHHY2015BO137469

PATIENT
  Sex: Male

DRUGS (2)
  1. GLIVEC [Suspect]
     Active Substance: IMATINIB MESYLATE
     Indication: GASTROINTESTINAL STROMAL TUMOUR
     Dosage: 400 MG, UNK
     Route: 065
  2. GLIVEC [Suspect]
     Active Substance: IMATINIB MESYLATE
     Dosage: 800 MG, UNK
     Route: 065

REACTIONS (8)
  - Malignant neoplasm progression [Unknown]
  - Metastases to liver [Unknown]
  - Gastrointestinal stromal tumour [Unknown]
  - Metastases to lung [Unknown]
  - Anaemia [Unknown]
  - Metastases to lymph nodes [Unknown]
  - Death [Fatal]
  - Asthenia [Unknown]
